FAERS Safety Report 5761951-9 (Version None)
Quarter: 2008Q2

REPORT INFORMATION
  Report Type: 
  Country: None (occurrence: None)
  Receive Date: 20080603
  Receipt Date: 20080519
  Transmission Date: 20081010
  Serious: Yes (Other)
  Sender: FDA-Public Use
  Company Number: 100#08#2008-02816

PATIENT
  Age: 53 Year
  Sex: Female

DRUGS (4)
  1. LITHIUM CARBONATE [Suspect]
     Indication: DRUG USE FOR UNKNOWN INDICATION
     Dosage: 300 MG THREE TIMES DAILY
  2. BETASERON [Suspect]
     Indication: MULTIPLE SCLEROSIS
  3. AMITRIPTLINE HCL [Concomitant]
  4. HYDROCHLOROTHIAZIDE [Concomitant]

REACTIONS (5)
  - ANXIETY [None]
  - BIPOLAR DISORDER [None]
  - CONDITION AGGRAVATED [None]
  - DRUG INTERACTION [None]
  - PARANOIA [None]
